FAERS Safety Report 21674560 (Version 1)
Quarter: 2022Q4

REPORT INFORMATION
  Report Type: Spontaneous
  Country: CN (occurrence: CN)
  Receive Date: 20221202
  Receipt Date: 20221202
  Transmission Date: 20230113
  Serious: Yes (Hospitalization, Disabling, Other)
  Sender: FDA-Public Use
  Company Number: None

PATIENT
  Age: 84 Year
  Sex: Male
  Weight: 50 kg

DRUGS (2)
  1. MANNITOL [Suspect]
     Active Substance: MANNITOL
     Indication: Brain oedema
     Dosage: 125 ML, 3 TIMES DAILY
     Route: 041
     Dates: start: 20220921, end: 20220925
  2. MANNITOL [Suspect]
     Active Substance: MANNITOL
     Dosage: 125 ML, 3 TIMES DAILY
     Route: 041
     Dates: start: 20220928, end: 20220928

REACTIONS (1)
  - Renal failure [Unknown]

NARRATIVE: CASE EVENT DATE: 20220928
